FAERS Safety Report 5881697-6 (Version None)
Quarter: 2008Q3

REPORT INFORMATION
  Report Type: 
  Country: None (occurrence: None)
  Receive Date: 20080912
  Receipt Date: 20080708
  Transmission Date: 20090109
  Serious: No
  Sender: FDA-Public Use
  Company Number: US-ABBOTT-08P-163-0461245-00

PATIENT
  Sex: Female
  Weight: 61.29 kg

DRUGS (6)
  1. HUMIRA [Suspect]
     Indication: RHEUMATOID ARTHRITIS
     Route: 058
     Dates: start: 20071201
  2. HUMIRA [Suspect]
     Route: 058
     Dates: start: 20080514, end: 20080528
  3. SYNTHROID [Suspect]
     Indication: HYPOTHYROIDISM
     Dosage: 25 MCG, 1 PILL, THEN 2 PILLS ALTERNATING DAYS
     Route: 048
  4. NAPROXEN SODIUM [Concomitant]
     Indication: PAIN
     Route: 048
  5. NAPROXEN SODIUM [Concomitant]
  6. METHOTREXATE [Concomitant]
     Indication: RHEUMATOID ARTHRITIS
     Route: 048

REACTIONS (4)
  - COAGULOPATHY [None]
  - EAR HAEMORRHAGE [None]
  - EPISTAXIS [None]
  - SINUSITIS [None]
